FAERS Safety Report 9956849 (Version 1)
Quarter: 2014Q1

REPORT INFORMATION
  Report Type: Report from Study
  Country: US (occurrence: US)
  Receive Date: 20140304
  Receipt Date: 20140304
  Transmission Date: 20141002
  Serious: No
  Sender: FDA-Public Use
  Company Number: US-ABBVIE-13P-163-1097155-00

PATIENT
  Age: 51 Year
  Sex: Female

DRUGS (9)
  1. HUMIRA [Suspect]
     Indication: COLITIS ULCERATIVE
     Dosage: 160MG LOADING DOSE
     Dates: start: 20130524
  2. PREDNISONE [Concomitant]
     Indication: PRODUCT USED FOR UNKNOWN INDICATION
     Dosage: 40MG DAILY
  3. IMURAN [Concomitant]
     Indication: PRODUCT USED FOR UNKNOWN INDICATION
     Dosage: 150MG DAILY
  4. PRAVASTATIN [Concomitant]
     Indication: BLOOD CHOLESTEROL INCREASED
     Dosage: DAILY
  5. CYMBALTA [Concomitant]
     Indication: FIBROMYALGIA
     Dosage: 60MG DAILY
  6. CYMBALTA [Concomitant]
     Indication: OSTEOARTHRITIS
  7. ZOFRAN [Concomitant]
     Indication: NAUSEA
  8. ZOFRAN [Concomitant]
     Indication: MIGRAINE
  9. AMERGE [Concomitant]
     Indication: MIGRAINE

REACTIONS (4)
  - Musculoskeletal stiffness [Recovering/Resolving]
  - Abdominal pain upper [Recovering/Resolving]
  - Vaginal haemorrhage [Unknown]
  - Thrombosis [Unknown]
